FAERS Safety Report 7668700-8 (Version None)
Quarter: 2011Q3

REPORT INFORMATION
  Report Type: 
  Country: None (occurrence: None)
  Receive Date: 20110808
  Receipt Date: 20110726
  Transmission Date: 20111222
  Serious: Yes (Hospitalization)
  Sender: FDA-Public Use
  Company Number: US-SHIRE-ALL1-2011-02498

PATIENT
  Age: 49 Year
  Sex: Male

DRUGS (4)
  1. VYVANSE [Suspect]
     Indication: ATTENTION DEFICIT/HYPERACTIVITY DISORDER
     Dosage: 40 MG, 1X/DAY:QD (QAM)
     Route: 048
     Dates: start: 20101230, end: 20110125
  2. UNSPECIFIED MEDICATION FOR ACUTE RENAL DISEASE [Concomitant]
     Indication: NEPHROPATHY
     Dosage: UNK, UNKNOWN
     Route: 065
  3. UNSPECIFIED MEDICAITON FOR HYPERTENSION [Concomitant]
     Indication: HYPERTENSION
     Dosage: UNK, UNKNOWN
     Route: 065
  4. UNSPECIFIED MEDICATION FOR EPISODIC SWEATING [Concomitant]
     Indication: HYPERHIDROSIS
     Dosage: UNK
     Route: 065

REACTIONS (1)
  - CHEST DISCOMFORT [None]
